FAERS Safety Report 8471011-4 (Version None)
Quarter: 2012Q2

REPORT INFORMATION
  Report Type: 
  Country: None (occurrence: None)
  Receive Date: 20120627
  Receipt Date: 20120614
  Transmission Date: 20120825
  Serious: Yes (Hospitalization)
  Sender: FDA-Public Use
  Company Number: US-ELI_LILLY_AND_COMPANY-US201206005711

PATIENT
  Sex: Female

DRUGS (13)
  1. FORTEO [Suspect]
     Indication: OSTEOPOROSIS
     Dosage: 20 U, QD
  2. LOVAZA [Concomitant]
     Dosage: UNK, UNKNOWN
  3. SINGULAIR [Concomitant]
     Dosage: UNK, UNKNOWN
  4. METOPROLOL TARTRATE [Concomitant]
     Dosage: UNK, UNKNOWN
  5. ALBUTEROL [Concomitant]
     Dosage: UNK, UNKNOWN
  6. LISINOPRIL [Concomitant]
     Dosage: UNK, UNKNOWN
  7. LORAZEPAM [Concomitant]
     Dosage: UNK, UNKNOWN
  8. ADVAIR DISKUS 100/50 [Concomitant]
     Dosage: UNK, UNKNOWN
  9. FLUOXETINE [Concomitant]
     Dosage: UNK, UNKNOWN
  10. MAGNESIUM SULFATE [Concomitant]
     Dosage: UNK, UNKNOWN
  11. FLUTICASONE [Concomitant]
     Dosage: UNK, UNKNOWN
  12. LORATADINE [Concomitant]
     Dosage: UNK, UNKNOWN
  13. ASPIRIN [Concomitant]
     Dosage: UNK, UNKNOWN

REACTIONS (1)
  - LUNG DISORDER [None]
